FAERS Safety Report 25376048 (Version 1)
Quarter: 2025Q2

REPORT INFORMATION
  Report Type: Spontaneous
  Country: NL (occurrence: NL)
  Receive Date: 20250529
  Receipt Date: 20250529
  Transmission Date: 20250717
  Serious: Yes (Death, Hospitalization, Other)
  Sender: PHARMACEUTICAL ASSOC
  Company Number: NL-PAIPHARMA-2025-NL-000007

PATIENT
  Age: 60 Year
  Sex: Male

DRUGS (3)
  1. OXYBUTYNIN CHLORIDE [Suspect]
     Active Substance: OXYBUTYNIN CHLORIDE
     Indication: Product used for unknown indication
  2. OMEPRAZOLE [Suspect]
     Active Substance: OMEPRAZOLE
     Indication: Product used for unknown indication
  3. SIMVASTATIN [Suspect]
     Active Substance: SIMVASTATIN
     Indication: Product used for unknown indication

REACTIONS (1)
  - Toxic epidermal necrolysis [Fatal]
